FAERS Safety Report 8877568 (Version 1)
Quarter: 2012Q4

REPORT INFORMATION
  Report Type: Spontaneous
  Country: US (occurrence: None)
  Receive Date: 20121026
  Receipt Date: 20121026
  Transmission Date: 20130627
  Serious: Yes (Hospitalization)
  Sender: FDA-Public Use
  Company Number: None

PATIENT
  Age: 65 Year
  Sex: Male
  Weight: 57.61 kg

DRUGS (2)
  1. XARELTO (RIVAROXABAN) [Suspect]
     Dosage: 10mg   Once a day   po
     Route: 048
     Dates: start: 20120702, end: 20120709
  2. ASPIRIN [Concomitant]

REACTIONS (1)
  - Haematuria [None]
